FAERS Safety Report 23678427 (Version 5)
Quarter: 2025Q1

REPORT INFORMATION
  Report Type: Report from Study
  Country: DE (occurrence: DE)
  Receive Date: 20240327
  Receipt Date: 20250313
  Transmission Date: 20250408
  Serious: Yes (Hospitalization)
  Sender: RANBAXY
  Company Number: DE-SUN PHARMACEUTICAL INDUSTRIES LTD-2024RR-437907

PATIENT
  Age: 28 Year
  Sex: Female
  Weight: 83 kg

DRUGS (5)
  1. SONIDEGIB [Suspect]
     Active Substance: SONIDEGIB
     Indication: Medulloblastoma
     Route: 048
     Dates: start: 20230907, end: 202402
  2. SONIDEGIB [Suspect]
     Active Substance: SONIDEGIB
     Dosage: UNK UNK, QOD
     Route: 048
     Dates: start: 20230907, end: 202402
  3. VINCRISTINE [Suspect]
     Active Substance: VINCRISTINE
     Indication: Medulloblastoma
     Route: 042
     Dates: start: 20230907, end: 20240209
  4. CISPLATIN [Suspect]
     Active Substance: CISPLATIN
     Indication: Medulloblastoma
     Route: 042
     Dates: start: 20231208, end: 20240126
  5. LOMUSTINE [Suspect]
     Active Substance: LOMUSTINE
     Indication: Medulloblastoma
     Route: 048
     Dates: start: 20231208, end: 20240126

REACTIONS (1)
  - Dental caries [Recovered/Resolved]

NARRATIVE: CASE EVENT DATE: 20240311
